FAERS Safety Report 19982777 (Version 1)
Quarter: 2021Q4

REPORT INFORMATION
  Report Type: Report from Study
  Country: IT (occurrence: IT)
  Receive Date: 20211021
  Receipt Date: 20211021
  Transmission Date: 20220303
  Serious: Yes (Other)
  Sender: FDA-Public Use
  Company Number: IT-SHIRE-IT201620977

PATIENT
  Age: 82 Year
  Sex: Male

DRUGS (16)
  1. IRINOTECAN [Suspect]
     Active Substance: IRINOTECAN
     Indication: Colorectal cancer metastatic
     Dosage: 240 MG, UNK
     Route: 041
     Dates: start: 20150624, end: 20150624
  2. IRINOTECAN [Suspect]
     Active Substance: IRINOTECAN
     Indication: Off label use
     Dosage: 270 MG, UNK
     Route: 041
     Dates: start: 20151118, end: 20151118
  3. AFLIBERCEPT [Suspect]
     Active Substance: AFLIBERCEPT
     Indication: Colorectal cancer metastatic
     Dosage: 300 MG, UNK
     Route: 041
     Dates: start: 20151118, end: 20151118
  4. AFLIBERCEPT [Suspect]
     Active Substance: AFLIBERCEPT
     Dosage: 320 MG, UNK
     Route: 041
     Dates: start: 20150624, end: 20150624
  5. FLUOROURACIL [Suspect]
     Active Substance: FLUOROURACIL
     Indication: Colorectal cancer metastatic
     Dosage: 600 MG, UNK
     Route: 040
     Dates: start: 20151118, end: 20151118
  6. FLUOROURACIL [Suspect]
     Active Substance: FLUOROURACIL
     Dosage: 1800 MG, UNK
     Route: 040
     Dates: start: 20151118, end: 20151118
  7. FLUOROURACIL [Suspect]
     Active Substance: FLUOROURACIL
     Dosage: 1500 MG, UNK
     Route: 041
     Dates: start: 20150624, end: 20150624
  8. FLUOROURACIL [Suspect]
     Active Substance: FLUOROURACIL
     Dosage: 534 MG, UNK
     Route: 040
     Dates: start: 20150624, end: 20150624
  9. LEUCOVORIN [Suspect]
     Active Substance: LEUCOVORIN
     Indication: Colorectal cancer metastatic
     Dosage: 380 MG, UNK
     Route: 041
     Dates: start: 20151118, end: 20151118
  10. LEUCOVORIN [Suspect]
     Active Substance: LEUCOVORIN
     Dosage: 380 MG, UNK
     Route: 041
     Dates: start: 20150624, end: 20150624
  11. INSULIN NOS [Concomitant]
     Active Substance: INSULIN NOS
     Dosage: NOT REPORTED
     Route: 065
     Dates: start: 2014
  12. ZANTAC [Concomitant]
     Active Substance: RANITIDINE HYDROCHLORIDE
     Dosage: NOT REPORTED
     Route: 065
     Dates: start: 20150624
  13. GLUTATHIONE [Concomitant]
     Active Substance: GLUTATHIONE
     Indication: Product used for unknown indication
     Dosage: NOT REPORTED
  14. CALCIUM GLUCONATE [Concomitant]
     Active Substance: CALCIUM GLUCONATE
     Indication: Product used for unknown indication
     Dosage: NOT REPORTED
  15. LOPERAMIDE [Concomitant]
     Active Substance: LOPERAMIDE
     Indication: Product used for unknown indication
     Dosage: NOT REPORTED
  16. MAGNESIUM SULFATE [Concomitant]
     Active Substance: MAGNESIUM SULFATE
     Indication: Product used for unknown indication
     Dosage: NOT REPORTED

REACTIONS (1)
  - Cardiac failure [Recovered/Resolved]

NARRATIVE: CASE EVENT DATE: 20151123
